FAERS Safety Report 7429198-8 (Version None)
Quarter: 2011Q2

REPORT INFORMATION
  Report Type: 
  Country: None (occurrence: None)
  Receive Date: 20110421
  Receipt Date: 20110415
  Transmission Date: 20111010
  Serious: Yes (Other)
  Sender: FDA-Public Use
  Company Number: GB-TEVA-277407ISR

PATIENT
  Age: 63 Year
  Sex: Male

DRUGS (2)
  1. SIMVASTATIN [Suspect]
     Indication: PROPHYLAXIS
     Dosage: 40 MILLIGRAM;
     Route: 048
  2. SIMVASTATIN [Suspect]
     Indication: TRANSIENT ISCHAEMIC ATTACK

REACTIONS (1)
  - TENDON RUPTURE [None]
